FAERS Safety Report 15228194 (Version 5)
Quarter: 2019Q1

REPORT INFORMATION
  Report Type: Report from Study
  Country: US (occurrence: US)
  Receive Date: 20180801
  Receipt Date: 20190107
  Transmission Date: 20190417
  Serious: Yes (Death, Other)
  Sender: FDA-Public Use
  Company Number: PHEH2018US031427

PATIENT
  Sex: Male

DRUGS (4)
  1. PROMACTA [Suspect]
     Active Substance: ELTROMBOPAG OLAMINE
     Dosage: 25 MG, QOD
     Route: 065
  2. PROMACTA [Suspect]
     Active Substance: ELTROMBOPAG OLAMINE
     Dosage: 25 MG, QD
     Route: 065
  3. COUMADIN [Concomitant]
     Active Substance: WARFARIN SODIUM
     Indication: PRODUCT USED FOR UNKNOWN INDICATION
     Route: 065
  4. PROMACTA [Suspect]
     Active Substance: ELTROMBOPAG OLAMINE
     Indication: THROMBOCYTOPENIA
     Dosage: 25 MG, QD
     Route: 065
     Dates: start: 2009

REACTIONS (15)
  - Bronchitis [Unknown]
  - Blood bilirubin increased [Unknown]
  - Varices oesophageal [Unknown]
  - Gynaecomastia [Unknown]
  - Oedema peripheral [Unknown]
  - Platelet count decreased [Unknown]
  - Cirrhosis alcoholic [Unknown]
  - Spleen disorder [Unknown]
  - Pain [Unknown]
  - Hepatic cancer stage IV [Unknown]
  - Portal hypertension [Unknown]
  - Atrial fibrillation [Unknown]
  - Death [Fatal]
  - Hepatic cirrhosis [Unknown]
  - Blood albumin decreased [Unknown]

NARRATIVE: CASE EVENT DATE: 2017
